FAERS Safety Report 13496276 (Version 4)
Quarter: 2017Q2

REPORT INFORMATION
  Report Type: Spontaneous
  Country: US (occurrence: US)
  Receive Date: 20170428
  Receipt Date: 20170515
  Transmission Date: 20170830
  Serious: No
  Sender: FDA-Public Use
  Company Number: US-JAZZ-2017-US-003677

PATIENT
  Sex: Female

DRUGS (5)
  1. XYREM [Suspect]
     Active Substance: SODIUM OXYBATE
     Dosage: 2.5G, BID
     Route: 048
     Dates: start: 20170401
  2. XYREM [Suspect]
     Active Substance: SODIUM OXYBATE
     Indication: NARCOLEPSY
     Dosage: 2G, BID
     Route: 048
     Dates: start: 20170312, end: 201703
  3. XYREM [Suspect]
     Active Substance: SODIUM OXYBATE
     Dosage: 2.50 G, QD
     Route: 048
     Dates: start: 201703, end: 201703
  4. XYREM [Suspect]
     Active Substance: SODIUM OXYBATE
     Dosage: 2.25 G, QD
     Route: 048
     Dates: start: 201703, end: 201703
  5. XYREM [Suspect]
     Active Substance: SODIUM OXYBATE
     Dosage: 2.5G, QD
     Route: 048
     Dates: start: 201703, end: 201703

REACTIONS (5)
  - Myalgia [Unknown]
  - Abnormal sensation in eye [Not Recovered/Not Resolved]
  - Night sweats [Not Recovered/Not Resolved]
  - Drug dose omission [Unknown]
  - Sensory disturbance [Not Recovered/Not Resolved]
